FAERS Safety Report 9835776 (Version 4)
Quarter: 2018Q4

REPORT INFORMATION
  Report Type: Spontaneous
  Country: US (occurrence: US)
  Receive Date: 20140122
  Receipt Date: 20181220
  Transmission Date: 20190205
  Serious: Yes (Other)
  Sender: FDA-Public Use
  Company Number: US-TEVA-457432USA

PATIENT
  Age: 35 Year
  Sex: Female
  Weight: 80.81 kg

DRUGS (1)
  1. PLAN B ONE-STEP [Suspect]
     Active Substance: LEVONORGESTREL
     Indication: POST COITAL CONTRACEPTION
     Dosage: 1.5 MILLIGRAM DAILY;
     Route: 048
     Dates: start: 20140104, end: 20140104

REACTIONS (4)
  - Maternal exposure before pregnancy [Unknown]
  - Pregnancy after post coital contraception [Recovered/Resolved]
  - Menstruation irregular [Not Recovered/Not Resolved]
  - Live birth [Recovered/Resolved]

NARRATIVE: CASE EVENT DATE: 20140115
